FAERS Safety Report 16060637 (Version 3)
Quarter: 2019Q1

REPORT INFORMATION
  Report Type: Spontaneous
  Country: US (occurrence: US)
  Receive Date: 20190312
  Receipt Date: 20190322
  Transmission Date: 20190418
  Serious: Yes (Hospitalization, Other)
  Sender: FDA-Public Use
  Company Number: US-ROCHE-2280255

PATIENT
  Age: 51 Year
  Sex: Female
  Weight: 107.6 kg

DRUGS (1)
  1. XOLAIR [Suspect]
     Active Substance: OMALIZUMAB
     Indication: ASTHMA
     Dosage: 15/FEB/2019
     Route: 058
     Dates: start: 20181126

REACTIONS (4)
  - Intentional product use issue [Unknown]
  - Anaphylactic reaction [Recovered/Resolved]
  - Off label use [Unknown]
  - Respiratory distress [Recovered/Resolved]

NARRATIVE: CASE EVENT DATE: 20181226
